FAERS Safety Report 17845278 (Version 1)
Quarter: 2020Q2

REPORT INFORMATION
  Report Type: Spontaneous
  Country: GB (occurrence: GB)
  Receive Date: 20200601
  Receipt Date: 20200601
  Transmission Date: 20200714
  Serious: Yes (Other)
  Sender: FDA-Public Use
  Company Number: GB-ACCORD-183746

PATIENT
  Age: 73 Year
  Sex: Male
  Weight: 75.29 kg

DRUGS (2)
  1. LOSARTAN. [Concomitant]
     Active Substance: LOSARTAN
  2. ATORVASTATIN/ATORVASTATIN CALCIUM [Suspect]
     Active Substance: ATORVASTATIN CALCIUM
     Indication: HYPERCHOLESTEROLAEMIA
     Route: 048
     Dates: start: 20190417, end: 20190717

REACTIONS (3)
  - Cholelithiasis [Unknown]
  - Abdominal discomfort [Recovered/Resolved]
  - Renal atrophy [Unknown]

NARRATIVE: CASE EVENT DATE: 20190629
